FAERS Safety Report 9169884 (Version 5)
Quarter: 2013Q3

REPORT INFORMATION
  Report Type: Spontaneous
  Country: JP (occurrence: JP)
  Receive Date: 20130319
  Receipt Date: 20130708
  Transmission Date: 20140515
  Serious: Yes (Other)
  Sender: FDA-Public Use
  Company Number: JP-009507513-1303JPN005808

PATIENT
  Age: 73 Year
  Sex: Female
  Weight: 66 kg

DRUGS (8)
  1. GASTER D [Suspect]
     Indication: PROPHYLAXIS
     Dosage: 20 MG, UID/QD
     Route: 048
     Dates: start: 20060425, end: 20060518
  2. GASTER D [Suspect]
     Indication: FUNGAL INFECTION
  3. FUNGUARD [Suspect]
     Indication: ORBITAL APEX SYNDROME
     Dosage: 300 MG, UID/QD
     Route: 041
     Dates: start: 20060428, end: 20060522
  4. FUNGUARD [Suspect]
     Indication: FUNGAL INFECTION
  5. LOXONIN [Concomitant]
     Dosage: UNK
     Route: 048
     Dates: start: 20060425, end: 20060509
  6. SELBEX [Concomitant]
     Dosage: UNK
     Route: 048
     Dates: start: 20060425, end: 20060529
  7. GRANDAXIN [Concomitant]
     Dosage: UNK
     Route: 048
     Dates: start: 20060425, end: 20060529
  8. CYTOTEC [Concomitant]
     Dosage: UNK
     Route: 048
     Dates: start: 20060504, end: 20060516

REACTIONS (5)
  - Orbital apex syndrome [Recovering/Resolving]
  - Fungal infection [Recovering/Resolving]
  - Hepatic function abnormal [Recovered/Resolved]
  - Drug ineffective [Unknown]
  - Off label use [Unknown]
